FAERS Safety Report 10387080 (Version 1)
Quarter: 2014Q3

REPORT INFORMATION
  Report Type: Spontaneous
  Country: US (occurrence: US)
  Receive Date: 20140815
  Receipt Date: 20140815
  Transmission Date: 20150326
  Serious: Yes (Other)
  Sender: FDA-Public Use
  Company Number: US-RB-067833-14

PATIENT
  Age: 10 Year
  Sex: Female

DRUGS (3)
  1. CHILDRENS MUCINEX MULTI-SYMPTOM COLD [Suspect]
     Active Substance: DEXTROMETHORPHAN HYDROBROMIDE\GUAIFENESIN\PHENYLEPHRINE HYDROCHLORIDE
     Indication: RESPIRATORY TRACT CONGESTION
     Dosage: PATIENT FIRST USED THE DRUG ON 04-AUG-2014. 10ML EVERY 4 HOURS
     Route: 065
  2. CHILDRENS MUCINEX MULTI-SYMPTOM COLD [Suspect]
     Active Substance: DEXTROMETHORPHAN HYDROBROMIDE\GUAIFENESIN\PHENYLEPHRINE HYDROCHLORIDE
     Indication: OROPHARYNGEAL PAIN
     Dosage: PATIENT FIRST USED THE DRUG ON 04-AUG-2014. 10ML EVERY 4 HOURS
     Route: 065
  3. AMOXICILLIN. [Suspect]
     Active Substance: AMOXICILLIN
     Indication: PRODUCT USED FOR UNKNOWN INDICATION
     Route: 065

REACTIONS (2)
  - Epistaxis [Recovered/Resolved]
  - Judgement impaired [Recovered/Resolved]

NARRATIVE: CASE EVENT DATE: 20140804
